FAERS Safety Report 16088261 (Version 1)
Quarter: 2019Q1

REPORT INFORMATION
  Report Type: Report from Study
  Country: CA (occurrence: CA)
  Receive Date: 20190319
  Receipt Date: 20190319
  Transmission Date: 20190418
  Serious: Yes (Death, Hospitalization)
  Sender: FDA-Public Use
  Company Number: CA-IPSEN BIOPHARMACEUTICALS, INC.-2019-02993

PATIENT
  Age: 55 Year
  Sex: Female

DRUGS (2)
  1. DYSPORT [Suspect]
     Active Substance: ABOBOTULINUMTOXINA
     Indication: MUSCLE SPASTICITY
     Dosage: 2400 UNITS
     Route: 030
     Dates: start: 20180816
  2. DYSPORT [Suspect]
     Active Substance: ABOBOTULINUMTOXINA
     Indication: TORTICOLLIS

REACTIONS (3)
  - Skin disorder [Unknown]
  - Prescribed overdose [Unknown]
  - Pneumonia aspiration [Fatal]

NARRATIVE: CASE EVENT DATE: 20181020
